FAERS Safety Report 23816327 (Version 2)
Quarter: 2024Q2

REPORT INFORMATION
  Report Type: Spontaneous
  Country: CN (occurrence: None)
  Receive Date: 20240503
  Receipt Date: 20240612
  Transmission Date: 20240716
  Serious: Yes (Other)
  Sender: FDA-Public Use
  Company Number: 2024A104276

PATIENT
  Age: 72 Year
  Sex: Male
  Weight: 73 kg

DRUGS (2)
  1. GEFITINIB [Suspect]
     Active Substance: GEFITINIB
     Indication: Lung disorder
     Route: 048
     Dates: start: 20240415, end: 20240418
  2. GEFITINIB [Suspect]
     Active Substance: GEFITINIB
     Indication: Lung disorder
     Route: 048

REACTIONS (2)
  - Anaphylactoid reaction [Recovering/Resolving]
  - Eczema [Recovering/Resolving]

NARRATIVE: CASE EVENT DATE: 20240415
